FAERS Safety Report 18527547 (Version 4)
Quarter: 2021Q1

REPORT INFORMATION
  Report Type: Spontaneous
  Country: CZ (occurrence: CZ)
  Receive Date: 20201120
  Receipt Date: 20210215
  Transmission Date: 20210419
  Serious: Yes (Hospitalization, Other)
  Sender: FDA-Public Use
  Company Number: NVSC2020CZ308863

PATIENT
  Age: 30 Year
  Sex: Male
  Weight: 80 kg

DRUGS (22)
  1. OLANZAPINE. [Suspect]
     Active Substance: OLANZAPINE
     Dosage: 5 MG
     Route: 065
  2. OLANZAPINE. [Suspect]
     Active Substance: OLANZAPINE
     Dosage: 20 MG INITIALLY DOSE WAS REDUCED AND LATER, OLANZAPINE WAS DISCONTINUED
     Route: 065
     Dates: start: 2020
  3. QUETIAPINE. [Suspect]
     Active Substance: QUETIAPINE
     Indication: SCHIZOPHRENIA
     Dosage: 200 MG, QD 200 MG INCREASED TO 600 MG IN 2007, LATED DISCONTINUED
     Route: 065
  4. PREGABALIN. [Concomitant]
     Active Substance: PREGABALIN
     Indication: DRUG THERAPY
     Dosage: 600 MG
     Route: 065
  5. LEVOTHYROXINE. [Concomitant]
     Active Substance: LEVOTHYROXINE
     Indication: HYPOTHYROIDISM
     Dosage: 75 UG (75 MCG)
     Route: 065
  6. ARIPIPRAZOLE. [Concomitant]
     Active Substance: ARIPIPRAZOLE
     Indication: SCHIZOPHRENIA
     Dosage: UNK
     Route: 065
     Dates: start: 2008
  7. AGOMELATINE [Concomitant]
     Active Substance: AGOMELATINE
     Indication: SCHIZOPHRENIA
     Dosage: 50 MG
     Route: 065
  8. METFORMIN [Concomitant]
     Active Substance: METFORMIN HYDROCHLORIDE
     Indication: TYPE 2 DIABETES MELLITUS
     Dosage: 2000 MG
     Route: 065
  9. CITALOPRAM [Concomitant]
     Active Substance: CITALOPRAM HYDROBROMIDE
     Indication: ANXIETY
     Dosage: 20 MG
     Route: 065
     Dates: start: 2007
  10. FENOFIBRATE. [Concomitant]
     Active Substance: FENOFIBRATE
     Indication: HYPERTRIGLYCERIDAEMIA
     Dosage: 215 MG
     Route: 065
  11. RISPERIDONE. [Suspect]
     Active Substance: RISPERIDONE
     Indication: SCHIZOPHRENIA
     Dosage: FIRST ORALLY, LATER SWITCHED TO LONG?LASTING INJECTION FORM
     Route: 048
     Dates: start: 2004
  12. BETAXOLOL. [Concomitant]
     Active Substance: BETAXOLOL
     Indication: ESSENTIAL HYPERTENSION
     Dosage: 10 MG
     Route: 065
  13. OLANZAPINE. [Suspect]
     Active Substance: OLANZAPINE
     Dosage: 10 MG
     Route: 065
     Dates: start: 2014
  14. OLANZAPINE. [Suspect]
     Active Substance: OLANZAPINE
     Indication: SCHIZOPHRENIA
     Dosage: 10 MG, QD
     Route: 065
     Dates: start: 2008, end: 2013
  15. PERINDOPRIL [Suspect]
     Active Substance: PERINDOPRIL
     Indication: HYPERTENSION
     Dosage: 4 MG, QD
     Route: 065
  16. REPAGLINIDE. [Suspect]
     Active Substance: REPAGLINIDE
     Indication: TYPE 2 DIABETES MELLITUS
     Dosage: UNK
     Route: 048
     Dates: end: 2017
  17. CARIPRAZINE [Concomitant]
     Active Substance: CARIPRAZINE
     Indication: SCHIZOPHRENIA
     Dosage: 4.5 MG
     Route: 065
     Dates: start: 201909
  18. PANTOPRAZOLE [Concomitant]
     Active Substance: PANTOPRAZOLE
     Indication: DRUG THERAPY
     Dosage: 80 MG
     Route: 065
  19. CLONAZEPAM. [Concomitant]
     Active Substance: CLONAZEPAM
     Indication: ANXIETY
     Dosage: 0.5 MG
     Route: 065
  20. OLANZAPINE. [Suspect]
     Active Substance: OLANZAPINE
     Dosage: 15 MG
     Route: 065
     Dates: start: 2013
  21. TESTOSTERONE. [Concomitant]
     Active Substance: TESTOSTERONE
     Indication: DRUG THERAPY
     Dosage: 1 DF, BIW
     Route: 065
  22. INSULIN DEGLUDEC [Concomitant]
     Active Substance: INSULIN DEGLUDEC
     Indication: TYPE 2 DIABETES MELLITUS
     Dosage: 40 UNITS IN THE EVENING
     Route: 065

REACTIONS (10)
  - Schizophrenia [Recovering/Resolving]
  - Sleep disorder [Recovered/Resolved]
  - Metabolic disorder [Recovering/Resolving]
  - Hyperprolactinaemia [Unknown]
  - Gynaecomastia [Unknown]
  - Pancreatitis acute [Recovered/Resolved]
  - Metabolic syndrome [Unknown]
  - Drug ineffective [Unknown]
  - Hypertriglyceridaemia [Unknown]
  - Type 2 diabetes mellitus [Unknown]

NARRATIVE: CASE EVENT DATE: 2007
